FAERS Safety Report 6597195-0 (Version None)
Quarter: 2010Q1

REPORT INFORMATION
  Report Type: 
  Country: None (occurrence: None)
  Receive Date: 20100223
  Receipt Date: 20100211
  Transmission Date: 20100710
  Serious: Yes (Hospitalization, Other)
  Sender: FDA-Public Use
  Company Number: PHHY2010US00550

PATIENT
  Sex: Male

DRUGS (4)
  1. ZOMETA [Suspect]
     Indication: MULTIPLE MYELOMA
     Dosage: 3.3 MG EVERY 28 DAYS
     Dates: start: 20091229
  2. THALIDOMIDE [Suspect]
     Dosage: X14 DAYS (CYCLE 5)
     Dates: start: 20091217
  3. SEPTRA [Suspect]
  4. DECADRON [Concomitant]
     Dosage: X14 DAYS (CYCLE 5)
     Dates: start: 20091217

REACTIONS (13)
  - ABNORMAL SENSATION IN EYE [None]
  - ANGIOEDEMA [None]
  - BLISTER [None]
  - BURNING SENSATION [None]
  - ERYTHEMA [None]
  - LIP SWELLING [None]
  - OEDEMA [None]
  - RASH GENERALISED [None]
  - RASH PAPULAR [None]
  - SKIN REACTION [None]
  - SWOLLEN TONGUE [None]
  - TOXIC EPIDERMAL NECROLYSIS [None]
  - URTICARIA [None]
